FAERS Safety Report 26139632 (Version 1)
Quarter: 2025Q4

REPORT INFORMATION
  Report Type: Spontaneous
  Country: EU (occurrence: EU)
  Receive Date: 20251210
  Receipt Date: 20251210
  Transmission Date: 20260118
  Serious: Yes (Other)
  Sender: DEXCEL LTD.
  Company Number: None

PATIENT
  Age: 41 Year
  Sex: Female
  Weight: 105 kg

DRUGS (1)
  1. PAROEX [Suspect]
     Active Substance: CHLORHEXIDINE GLUCONATE
     Indication: Gingivitis
     Dosage: 15ML
     Route: 048
     Dates: start: 20251119, end: 20251122

REACTIONS (6)
  - Dizziness [Recovering/Resolving]
  - Swollen tongue [Recovering/Resolving]
  - Tongue erythema [Recovering/Resolving]
  - Dysphagia [Recovering/Resolving]
  - Circulatory collapse [Recovering/Resolving]
  - Cardiovascular disorder [Recovering/Resolving]

NARRATIVE: CASE EVENT DATE: 20251120
